FAERS Safety Report 4923535-1 (Version None)
Quarter: 2006Q1

REPORT INFORMATION
  Report Type: 
  Country: None (occurrence: None)
  Receive Date: 20060221
  Receipt Date: 20060209
  Transmission Date: 20060701
  Serious: Yes (Other)
  Sender: FDA-Public Use
  Company Number: 217899

PATIENT
  Sex: Female

DRUGS (1)
  1. RITUXAN          (RITUXIMAB) [Suspect]
     Indication: NON-HODGKIN'S LYMPHOMA

REACTIONS (1)
  - MYOCARDIAL INFARCTION [None]
